FAERS Safety Report 5055426-2 (Version None)
Quarter: 2006Q3

REPORT INFORMATION
  Report Type: 
  Country: None (occurrence: None)
  Receive Date: 20060717
  Receipt Date: 20060717
  Transmission Date: 20061208
  Serious: Yes (Hospitalization)
  Sender: FDA-Public Use
  Company Number: None

PATIENT
  Age: 81 Year
  Sex: Female
  Weight: 50.8029 kg

DRUGS (7)
  1. FOSAMAX [Suspect]
     Indication: OSTEOPOROSIS
     Dosage: 70 MG PO Q WEEK [CHRONIC]
     Route: 048
  2. EXELON [Concomitant]
  3. PROSTAT [Concomitant]
  4. SINEMET [Concomitant]
  5. MEGACE [Concomitant]
  6. OSCAL +D [Concomitant]
  7. CLARINEX [Concomitant]

REACTIONS (2)
  - CHOKING [None]
  - OESOPHAGEAL ULCER [None]
